FAERS Safety Report 5712696-2 (Version None)
Quarter: 2008Q2

REPORT INFORMATION
  Report Type: 
  Country: None (occurrence: None)
  Receive Date: 20080418
  Receipt Date: 20080410
  Transmission Date: 20081010
  Serious: Yes (Life-Threatening, Hospitalization)
  Sender: FDA-Public Use
  Company Number: MEDI-0006690

PATIENT
  Age: 4 Month
  Sex: Female
  Weight: 3.3 kg

DRUGS (3)
  1. SYNAGIS [Suspect]
     Indication: ANTIVIRAL PROPHYLAXIS
     Dosage: 1 IN 1 M, INTRAMUSCULAR; 1 IN 1 M, INTRAMUSCULAR; 1 IN 1 M, INTRAMUSCULAR
     Route: 030
     Dates: start: 20071211, end: 20080218
  2. SYNAGIS [Suspect]
     Indication: ANTIVIRAL PROPHYLAXIS
     Dosage: 1 IN 1 M, INTRAMUSCULAR; 1 IN 1 M, INTRAMUSCULAR; 1 IN 1 M, INTRAMUSCULAR
     Route: 030
     Dates: start: 20071211
  3. SYNAGIS [Suspect]
     Indication: ANTIVIRAL PROPHYLAXIS
     Dosage: 1 IN 1 M, INTRAMUSCULAR; 1 IN 1 M, INTRAMUSCULAR; 1 IN 1 M, INTRAMUSCULAR
     Route: 030
     Dates: start: 20080118

REACTIONS (17)
  - ABDOMINAL DISTENSION [None]
  - APNOEA [None]
  - BRADYCARDIA [None]
  - BRONCHOPNEUMONIA [None]
  - CYANOSIS [None]
  - DIARRHOEA [None]
  - HAEMATOCHEZIA [None]
  - HYPOTENSION [None]
  - HYPOTHERMIA [None]
  - INTUSSUSCEPTION [None]
  - METABOLIC ACIDOSIS [None]
  - MYCOPLASMA INFECTION [None]
  - RESPIRATORY FAILURE [None]
  - RESPIRATORY RATE INCREASED [None]
  - RHINORRHOEA [None]
  - SEPTIC SHOCK [None]
  - VOMITING [None]
